FAERS Safety Report 10654550 (Version 1)
Quarter: 2014Q4

REPORT INFORMATION
  Report Type: Spontaneous
  Country: GB (occurrence: None)
  Receive Date: 20141212
  Receipt Date: 20141212
  Transmission Date: 20150529
  Serious: Yes (Hospitalization, Disabling, Other)
  Sender: FDA-Public Use
  Company Number: CL-596-2014

PATIENT
  Age: 39 Year
  Sex: Female

DRUGS (2)
  1. NOREPINEPHRINE [Suspect]
     Active Substance: NOREPINEPHRINE\NOREPINEPHRINE BITARTRATE
     Indication: BLOOD PRESSURE INCREASED
     Dosage: 0.02 MCG/KG/MIN
     Route: 042
  2. MILRINONE [Suspect]
     Active Substance: MILRINONE
     Indication: CEREBRAL VASOCONSTRICTION
     Route: 042

REACTIONS (4)
  - Condition aggravated [None]
  - Pulmonary oedema [None]
  - Cerebral vasoconstriction [None]
  - Off label use [None]
